FAERS Safety Report 9129793 (Version 2)
Quarter: 2013Q1

REPORT INFORMATION
  Report Type: Spontaneous
  Country: CA (occurrence: CA)
  Receive Date: 20130125
  Receipt Date: 20130311
  Transmission Date: 20140127
  Serious: Yes (Hospitalization)
  Sender: FDA-Public Use
  Company Number: CA-BRISTOL-MYERS SQUIBB COMPANY-17297839

PATIENT
  Age: 55 Year
  Sex: Male

DRUGS (3)
  1. SPRYCEL [Suspect]
     Indication: CHRONIC MYELOID LEUKAEMIA
     Dosage: THERAPY WAS STOPPED ON 11JAN13 AND 12JAN13?RESUMED ON 13JAN13
     Route: 048
     Dates: start: 20120811
  2. CARDIZEM [Concomitant]
  3. PREDNISONE [Concomitant]

REACTIONS (1)
  - Crohn^s disease [Not Recovered/Not Resolved]
